FAERS Safety Report 13732422 (Version 2)
Quarter: 2020Q3

REPORT INFORMATION
  Report Type: Report from Study
  Country: US (occurrence: US)
  Receive Date: 20170707
  Receipt Date: 20200814
  Transmission Date: 20201102
  Serious: No
  Sender: FDA-Public Use
  Company Number: US-SA-2017SA109413

PATIENT
  Age: 65 Year
  Sex: Female
  Weight: 65.7 kg

DRUGS (4)
  1. DUPILUMAB [Suspect]
     Active Substance: DUPILUMAB
     Indication: ECZEMA
     Dosage: 300 MG,QOW
     Route: 058
     Dates: start: 20160502, end: 2019
  2. DUPILUMAB [Suspect]
     Active Substance: DUPILUMAB
     Indication: DERMATITIS ATOPIC
     Dosage: 600 MG,1X
     Route: 058
     Dates: start: 2015, end: 2015
  3. PROVENTIL HFA [Concomitant]
     Active Substance: ALBUTEROL SULFATE
     Indication: ASTHMA
     Dosage: UNK UNK,UNK
     Route: 065
  4. PROTOPIC [Concomitant]
     Active Substance: TACROLIMUS
     Dosage: UNK UNK,UNK
     Route: 061

REACTIONS (10)
  - Rash [Unknown]
  - Erythema [Not Recovered/Not Resolved]
  - Conjunctivitis [Recovering/Resolving]
  - Pruritus [Not Recovered/Not Resolved]
  - Lacrimation increased [Recovering/Resolving]
  - Off label use [Unknown]
  - Ocular hyperaemia [Recovering/Resolving]
  - Eczema [Unknown]
  - Dry eye [Not Recovered/Not Resolved]
  - Eye pruritus [Recovering/Resolving]

NARRATIVE: CASE EVENT DATE: 2017
